FAERS Safety Report 15728441 (Version 3)
Quarter: 2018Q4

REPORT INFORMATION
  Report Type: Spontaneous
  Country: DE (occurrence: DE)
  Receive Date: 20181217
  Receipt Date: 20181217
  Transmission Date: 20190205
  Serious: Yes (Hospitalization, Other)
  Sender: FDA-Public Use
  Company Number: PHHY2006DE011086

PATIENT
  Age: 37 Year
  Sex: Female

DRUGS (1)
  1. DICLOFENAC [Suspect]
     Active Substance: DICLOFENAC
     Indication: MIGRAINE
     Dosage: 25 MG, UNK
     Route: 065

REACTIONS (9)
  - Drug specific antibody [Recovered/Resolved]
  - Mucosal haemorrhage [Unknown]
  - Subcutaneous haematoma [Recovered/Resolved]
  - Haemolytic anaemia [Recovered/Resolved]
  - Ecchymosis [Unknown]
  - Petechiae [Recovered/Resolved]
  - Anti-erythrocyte antibody positive [Recovered/Resolved]
  - Thrombocytopenia [Recovered/Resolved]
  - Menorrhagia [Recovered/Resolved]
